FAERS Safety Report 16607919 (Version 1)
Quarter: 2019Q3

REPORT INFORMATION
  Report Type: Spontaneous
  Country: US (occurrence: US)
  Receive Date: 20190719
  Receipt Date: 20190719
  Transmission Date: 20191004
  Serious: Yes (Disabling)
  Sender: FDA-Public Use
  Company Number: None

PATIENT
  Age: 36 Year
  Sex: Female
  Weight: 109.8 kg

DRUGS (4)
  1. DEXTROAMPHET SACCHARAT, AMPHET ASPARTATE, DEXTROAMPHET SULFATE AND AMPHET SULFAT [Suspect]
     Active Substance: AMPHETAMINE ASPARTATE\AMPHETAMINE SULFATE\DEXTROAMPHETAMINE SACCHARATE\DEXTROAMPHETAMINE SULFATE
     Indication: ATTENTION DEFICIT/HYPERACTIVITY DISORDER
     Dosage: ?          QUANTITY:60 TABLET(S);?
     Route: 048
     Dates: start: 20190315, end: 20190716
  2. INSULIN [Concomitant]
     Active Substance: INSULIN NOS
  3. CGM [Concomitant]
  4. WOMEN^S 1 A DAY MULTIVITAMIN [Concomitant]

REACTIONS (10)
  - Paranoia [None]
  - Insomnia [None]
  - Heart rate increased [None]
  - Migraine [None]
  - Anxiety [None]
  - Nausea [None]
  - Product substitution issue [None]
  - Suspected product quality issue [None]
  - Depression [None]
  - Hyperhidrosis [None]

NARRATIVE: CASE EVENT DATE: 20190701
